FAERS Safety Report 19785729 (Version 1)
Quarter: 2021Q3

REPORT INFORMATION
  Report Type: Spontaneous
  Country: IT (occurrence: IT)
  Receive Date: 20210903
  Receipt Date: 20210903
  Transmission Date: 20211014
  Serious: Yes (Other)
  Sender: FDA-Public Use
  Company Number: IT-MYLANLABS-M-EU-2016120508

PATIENT
  Age: 10 Year
  Sex: Female

DRUGS (6)
  1. ACETAMINOPHEN. [Concomitant]
     Active Substance: ACETAMINOPHEN
     Dosage: UNK
  2. IBUPROFEN. [Suspect]
     Active Substance: IBUPROFEN
     Dosage: UNK
     Route: 048
  3. FLUTICASONE W/SALMETEROL [Concomitant]
     Active Substance: FLUTICASONE PROPIONATE\SALMETEROL XINAFOATE
     Indication: ASTHMA
     Dosage: UNK
     Route: 055
  4. IBUPROFEN. [Suspect]
     Active Substance: IBUPROFEN
     Indication: DRUG PROVOCATION TEST
     Dosage: 10 MILLIGRAM/KILOGRAM
     Route: 048
  5. FLURBIPROFEN. [Suspect]
     Active Substance: FLURBIPROFEN
     Indication: OROPHARYNGEAL PAIN
     Dosage: 8.75 MILLIGRAM
     Route: 048
  6. FLUTICASONE. [Concomitant]
     Active Substance: FLUTICASONE
     Indication: ASTHMA
     Dosage: UNK

REACTIONS (4)
  - Hypersensitivity [Unknown]
  - Erythema [Recovered/Resolved]
  - Angioedema [Recovering/Resolving]
  - Paraesthesia oral [Recovered/Resolved]
